FAERS Safety Report 9929281 (Version 1)
Quarter: 2014Q1

REPORT INFORMATION
  Report Type: Report from Study
  Country: US (occurrence: US)
  Receive Date: 20140227
  Receipt Date: 20140227
  Transmission Date: 20141002
  Serious: Yes (Other)
  Sender: FDA-Public Use
  Company Number: US-ROCHE-1328592

PATIENT
  Age: 52 Year
  Sex: Female
  Weight: 75.82 kg

DRUGS (30)
  1. AVASTIN [Suspect]
     Indication: ADRENAL GLAND CANCER METASTATIC
     Route: 042
     Dates: start: 20120228
  2. VALIUM [Suspect]
     Indication: PRODUCT USED FOR UNKNOWN INDICATION
     Route: 065
  3. BENAZEPRIL [Concomitant]
  4. DARVOCET-N 100 [Concomitant]
  5. FLORINEF [Concomitant]
  6. HYDROCHLOROTHIAZIDE [Concomitant]
  7. HYDROCORTISONE [Concomitant]
     Dosage: AM
     Route: 065
     Dates: start: 20120228
  8. HYDROCORTISONE [Concomitant]
     Route: 065
     Dates: start: 20120227
  9. HYDROCORTISONE [Concomitant]
     Route: 065
  10. LOTENSIN (UNITED STATES) [Concomitant]
  11. PEPCID [Concomitant]
  12. SYNTHROID [Concomitant]
  13. XANAX [Concomitant]
  14. ZOFRAN [Concomitant]
  15. STREPTOZOTOCIN [Concomitant]
     Route: 042
  16. STREPTOZOTOCIN [Concomitant]
     Route: 042
     Dates: start: 20121113
  17. 5-FU [Concomitant]
     Dosage: OVER 48 HOURS FOR 2 DOSES
     Route: 042
     Dates: start: 20120228
  18. LEUCOVORIN [Concomitant]
     Dosage: OVER 48 HOURS FOR 2 DOSES
     Route: 042
     Dates: start: 20120228
  19. DIPHENHYDRAMINE HCL [Concomitant]
     Dosage: X 2 DOSES
     Route: 042
     Dates: start: 20121024
  20. ACETAMINOPHEN [Concomitant]
     Dosage: FOR 2 DOSES
     Route: 048
     Dates: start: 20121024
  21. ACETAMINOPHEN [Concomitant]
     Dosage: ONCE
     Route: 048
     Dates: start: 20120410, end: 20120410
  22. ACETAMINOPHEN [Concomitant]
     Route: 048
     Dates: start: 20120424
  23. PALONOSETRON HYDROCHLORIDE [Concomitant]
     Route: 042
     Dates: start: 20120228
  24. EMEND [Concomitant]
     Route: 042
     Dates: start: 20121113
  25. DEXAMETHASONE [Concomitant]
     Route: 042
     Dates: start: 20121113
  26. ATIVAN [Concomitant]
     Route: 065
  27. AMLODIPINE [Concomitant]
  28. ARIXTRA [Concomitant]
     Indication: THROMBOSIS IN DEVICE
     Dosage: FOR 5 DAYS
     Route: 058
  29. CIPRO [Concomitant]
  30. MITOTANE [Concomitant]

REACTIONS (45)
  - Renal failure acute [Unknown]
  - Sinus headache [Unknown]
  - Epistaxis [Unknown]
  - Fatigue [Unknown]
  - Lacrimation increased [Unknown]
  - Anxiety [Unknown]
  - Erythema [Unknown]
  - Abdominal pain [Unknown]
  - Renal atrophy [Unknown]
  - Eating disorder [Unknown]
  - Anxiety [Unknown]
  - Constipation [Unknown]
  - Pain in extremity [Unknown]
  - Gingival bleeding [Unknown]
  - Haemoptysis [Unknown]
  - Muscle spasms [Unknown]
  - Hypertension [Unknown]
  - Upper-airway cough syndrome [Unknown]
  - Urinary tract infection [Unknown]
  - Palpitations [Unknown]
  - Dyspnoea [Recovered/Resolved]
  - Erythema [Unknown]
  - Epistaxis [Unknown]
  - Acute sinusitis [Unknown]
  - Dehydration [Unknown]
  - Erythema [Unknown]
  - Abdominal discomfort [Unknown]
  - Tachycardia [Unknown]
  - Abdominal distension [Unknown]
  - Flushing [Unknown]
  - Thrombosis in device [Unknown]
  - Abdominal tenderness [Unknown]
  - Mucosal dryness [Unknown]
  - Muscular weakness [Unknown]
  - Back pain [Unknown]
  - Local swelling [Unknown]
  - Blood pressure diastolic increased [Unknown]
  - Abdominal pain upper [Unknown]
  - Chest pain [Unknown]
  - Abdominal discomfort [Unknown]
  - Fatigue [Unknown]
  - Feeling abnormal [Unknown]
  - Oedema peripheral [Unknown]
  - Drug hypersensitivity [Unknown]
  - Off label use [Unknown]
